FAERS Safety Report 18242341 (Version 1)
Quarter: 2020Q3

REPORT INFORMATION
  Report Type: Spontaneous
  Country: US (occurrence: US)
  Receive Date: 20200908
  Receipt Date: 20200908
  Transmission Date: 20201103
  Serious: Yes (Hospitalization, Other)
  Sender: FDA-Public Use
  Company Number: US-PFIZER INC-2020344966

PATIENT
  Age: 52 Year
  Sex: Female
  Weight: 73.2 kg

DRUGS (3)
  1. PREMPRO [Concomitant]
     Active Substance: ESTROGENS, CONJUGATED\MEDROXYPROGESTERONE ACETATE
     Dosage: UNK (0.45?1.5 MG TABLET)
  2. LEVOTHYROXINE. [Concomitant]
     Active Substance: LEVOTHYROXINE
     Dosage: 75 UG, 1X/DAY
     Route: 048
  3. VENLAFAXINE HCL [Suspect]
     Active Substance: VENLAFAXINE HYDROCHLORIDE
     Dosage: 75 MG, 2X/DAY
     Route: 048

REACTIONS (6)
  - Hyperparathyroidism [Unknown]
  - Hypertension [Unknown]
  - Off label use [Unknown]
  - Blood glucose increased [Unknown]
  - Hyperlipidaemia [Unknown]
  - Diabetes mellitus [Unknown]
